FAERS Safety Report 5743392-3 (Version None)
Quarter: 2008Q2

REPORT INFORMATION
  Report Type: 
  Country: None (occurrence: None)
  Receive Date: 20080515
  Receipt Date: 20080515
  Transmission Date: 20081010
  Serious: Yes (Death, Hospitalization)
  Sender: FDA-Public Use
  Company Number: None

PATIENT
  Age: 64 Year
  Sex: Male
  Weight: 90.7194 kg

DRUGS (1)
  1. ARANESP [Suspect]
     Indication: LUNG NEOPLASM MALIGNANT

REACTIONS (4)
  - CARDIAC FAILURE CONGESTIVE [None]
  - CONFUSIONAL STATE [None]
  - UNEVALUABLE EVENT [None]
  - VENTRICULAR EXTRASYSTOLES [None]
